FAERS Safety Report 17097994 (Version 1)
Quarter: 2019Q4

REPORT INFORMATION
  Report Type: Spontaneous
  Country: US (occurrence: US)
  Receive Date: 20191202
  Receipt Date: 20191202
  Transmission Date: 20200122
  Serious: Yes (Hospitalization, Other)
  Sender: FDA-Public Use
  Company Number: US-PFIZER INC-2019513784

PATIENT
  Age: 54 Year
  Sex: Male
  Weight: 104.3 kg

DRUGS (2)
  1. GABAPENTIN. [Suspect]
     Active Substance: GABAPENTIN
     Indication: NERVE BLOCK
     Dosage: UNK
     Dates: start: 20190820, end: 201910
  2. GABAPENTIN. [Suspect]
     Active Substance: GABAPENTIN
     Indication: NEURALGIA

REACTIONS (11)
  - Off label use [Unknown]
  - Nervousness [Unknown]
  - Suicide attempt [Unknown]
  - Product use in unapproved indication [Unknown]
  - Psychotic disorder [Not Recovered/Not Resolved]
  - Delirium [Unknown]
  - Drug dependence [Unknown]
  - Withdrawal syndrome [Unknown]
  - Weight decreased [Unknown]
  - Obsessive thoughts [Unknown]
  - Anxiety [Unknown]

NARRATIVE: CASE EVENT DATE: 201909
